FAERS Safety Report 6715332-1 (Version None)
Quarter: 2010Q2

REPORT INFORMATION
  Report Type: 
  Country: None (occurrence: None)
  Receive Date: 20100507
  Receipt Date: 20100430
  Transmission Date: 20101027
  Serious: Yes (Life-Threatening, Hospitalization)
  Sender: FDA-Public Use
  Company Number: MA-GENZYME-THYM-1001498

PATIENT
  Age: 17 Year
  Sex: Male

DRUGS (1)
  1. THYMOGLOBULIN [Suspect]
     Indication: BONE MARROW FAILURE
     Dosage: UNK
     Route: 042
     Dates: start: 20100419

REACTIONS (3)
  - ANAPHYLACTIC SHOCK [None]
  - CEREBRAL HAEMORRHAGE [None]
  - COMA [None]
